FAERS Safety Report 7897141-3 (Version None)
Quarter: 2011Q4

REPORT INFORMATION
  Report Type: 
  Country: None (occurrence: None)
  Receive Date: 20111104
  Receipt Date: 20111104
  Transmission Date: 20120403
  Serious: Yes (Death, Life-Threatening, Disabling, Other)
  Sender: FDA-Public Use
  Company Number: None

PATIENT
  Age: 45 Year
  Sex: Female
  Weight: 123.3784 kg

DRUGS (2)
  1. ZYPREXA [Suspect]
     Dosage: 15 MG ZYPREXA DAILY ORAL
     Route: 048
     Dates: start: 20050101, end: 20100101
  2. ZYPREXA [Suspect]
     Indication: BIPOLAR DISORDER
     Dosage: 10 MG ZYPAREXA DAILY ORAL
     Route: 048
     Dates: start: 20050101, end: 20100101

REACTIONS (4)
  - TYPE 2 DIABETES MELLITUS [None]
  - COMPLETED SUICIDE [None]
  - DEPRESSION [None]
  - WEIGHT INCREASED [None]
